FAERS Safety Report 7374571-X (Version None)
Quarter: 2011Q1

REPORT INFORMATION
  Report Type: 
  Country: None (occurrence: None)
  Receive Date: 20110325
  Receipt Date: 20100415
  Transmission Date: 20110831
  Serious: No
  Sender: FDA-Public Use
  Company Number: US-MYLANLABS-2010S1005331

PATIENT
  Age: 52 Year
  Sex: Female
  Weight: 65.77 kg

DRUGS (14)
  1. FENTANYL-100 [Suspect]
     Dosage: Q 72 HOURS
     Route: 062
     Dates: start: 20070101
  2. ONDANSETRON [Concomitant]
  3. FENTANYL-100 [Suspect]
     Indication: ARTHRITIS
     Dosage: Q 72 HOURS
     Route: 062
     Dates: start: 20070101
  4. OXYCODONE [Concomitant]
     Dosage: 5MG/325MG 2 TABLETS QID PRN
  5. PRAVASTATIN [Concomitant]
     Dosage: THREE TABS (60MG) QD
  6. CLONAZEPAM [Concomitant]
  7. OMEPRAZOLE [Concomitant]
  8. SERTRALINE HYDROCHLORIDE [Concomitant]
  9. HYDROXYZINE [Concomitant]
  10. RALOXIFENE HCL [Concomitant]
  11. ZOLPIDEM [Concomitant]
  12. NITRODEX [Concomitant]
     Dosage: PRN
  13. NEURONTIN [Concomitant]
  14. VERAPAMIL [Concomitant]

REACTIONS (1)
  - DRUG SCREEN NEGATIVE [None]
